FAERS Safety Report 8764990 (Version 1)
Quarter: 2012Q4

REPORT INFORMATION
  Report Type: 
  Country: DE (occurrence: DE)
  Receive Date: 20120903
  Receipt Date: 20120903
  Transmission Date: 20130627
  Serious: No
  Sender: FDA-Public Use
  Company Number: DE-009507513-1208DEU010348

PATIENT

DRUGS (7)
  1. ASENAPINE MALEATE [Suspect]
  2. ERGENYL CHRONO [Suspect]
  3. HALDOL [Suspect]
  4. SEROQUEL [Suspect]
  5. ZYPREXA [Suspect]
  6. RISPERDAL [Suspect]
  7. LORAZEPAM [Suspect]

REACTIONS (16)
  - Abdominal discomfort [Unknown]
  - Abdominal discomfort [Unknown]
  - Alopecia [Unknown]
  - Asthma [Unknown]
  - Breast pain [Unknown]
  - Dizziness [Unknown]
  - Eye pain [Unknown]
  - Oedema [Unknown]
  - Mental impairment [Unknown]
  - Periodontal disease [Unknown]
  - Speech disorder [Unknown]
  - Balance disorder [Unknown]
  - Intestinal obstruction [Not Recovered/Not Resolved]
  - Visual acuity reduced [Not Recovered/Not Resolved]
  - Weight increased [Not Recovered/Not Resolved]
  - Pain [None]
